FAERS Safety Report 10911163 (Version 1)
Quarter: 2015Q1

REPORT INFORMATION
  Report Type: Report from Study
  Country: US (occurrence: US)
  Receive Date: 20150312
  Receipt Date: 20150312
  Transmission Date: 20150721
  Serious: Yes (Life-Threatening)
  Sender: FDA-Public Use
  Company Number: US-ALLERGAN-1503741CX

PATIENT
  Age: 58 Year
  Sex: Female

DRUGS (7)
  1. LOSARTAN [Concomitant]
     Active Substance: LOSARTAN
     Indication: HYPERTENSION
     Dosage: TAKEN QD
     Route: 048
     Dates: start: 201412
  2. SKINMEDICA ULTRA SHEER MOISTURIZER [Suspect]
     Active Substance: COSMETICS
     Indication: PROPHYLAXIS
     Dosage: APPLIED QHS
     Route: 061
  3. HYDROCHLOROTHIAZIDE. [Concomitant]
     Active Substance: HYDROCHLOROTHIAZIDE
     Indication: HYPERTENSION
     Dosage: TAKEN QD
     Route: 048
     Dates: start: 201411
  4. SKINMEDICA FACIAL CLEANSER [Suspect]
     Active Substance: COSMETICS
     Indication: PROPHYLAXIS
     Dosage: APPLIED BID
     Route: 061
  5. METOPROLOL [Concomitant]
     Active Substance: METOPROLOL
     Indication: HYPERTENSION
     Dosage: TAKEN QD
     Route: 048
     Dates: start: 201412
  6. LEVOTHYROXINE [Concomitant]
     Active Substance: LEVOTHYROXINE
     Indication: HYPOTHYROIDISM
     Dosage: TAKEN QD
     Route: 048
     Dates: start: 2005
  7. SKINMEDICA TOTAL DEFENSE + REPAIR SPF 34, UNTINTED [Suspect]
     Active Substance: OCTINOXATE\ZINC OXIDE
     Indication: PROPHYLAXIS
     Dosage: APPLIED QAM
     Route: 061
     Dates: start: 20150127

REACTIONS (1)
  - Coronary artery occlusion [Recovered/Resolved with Sequelae]

NARRATIVE: CASE EVENT DATE: 20150210
